FAERS Safety Report 9955492 (Version 1)
Quarter: 2014Q1

REPORT INFORMATION
  Report Type: Report from Study
  Country: US (occurrence: US)
  Receive Date: 20140304
  Receipt Date: 20140304
  Transmission Date: 20141002
  Serious: No
  Sender: FDA-Public Use
  Company Number: US-ABBVIE-13P-163-1074691-00

PATIENT
  Age: 41 Year
  Sex: Male
  Weight: 158.9 kg

DRUGS (6)
  1. HUMIRA [Suspect]
     Indication: PSORIASIS
     Dates: start: 201209, end: 201301
  2. HUMIRA [Suspect]
     Dates: start: 201301
  3. TACLONEX [Concomitant]
     Indication: PSORIASIS
  4. BENICAR [Concomitant]
     Indication: HYPERTENSION
  5. ASPIRIN [Concomitant]
     Indication: PRODUCT USED FOR UNKNOWN INDICATION
  6. CARVEDILOL [Concomitant]
     Indication: PRODUCT USED FOR UNKNOWN INDICATION

REACTIONS (8)
  - Sunburn [Recovering/Resolving]
  - Herpes zoster [Recovering/Resolving]
  - Burning sensation [Recovering/Resolving]
  - Blister [Recovering/Resolving]
  - Pain [Recovered/Resolved]
  - Drug effect decreased [Recovering/Resolving]
  - Device malfunction [Unknown]
  - Incorrect dose administered [Unknown]
